FAERS Safety Report 8920328 (Version 1)
Quarter: 2012Q4

REPORT INFORMATION
  Report Type: 
  Country: BB (occurrence: BB)
  Receive Date: 20121121
  Receipt Date: 20121121
  Transmission Date: 20130627
  Serious: Yes (Other)
  Sender: FDA-Public Use
  Company Number: BB-B.I. PHARMACEUTICALS,INC./RIDGEFIELD-2012-CN-02280CN

PATIENT
  Age: 68 Year
  Sex: Male

DRUGS (3)
  1. PRADAX [Suspect]
     Indication: CEREBROVASCULAR ACCIDENT PROPHYLAXIS
     Dosage: 300 mg
     Route: 048
  2. PRADAX [Suspect]
     Indication: THROMBOSIS PROPHYLAXIS
  3. PRADAX [Suspect]
     Indication: ATRIAL FIBRILLATION

REACTIONS (1)
  - Cerebrovascular accident [Unknown]
